FAERS Safety Report 11232639 (Version 1)
Quarter: 2015Q3

REPORT INFORMATION
  Report Type: Spontaneous
  Country: DE (occurrence: DE)
  Receive Date: 20150701
  Receipt Date: 20150701
  Transmission Date: 20151125
  Serious: Yes (Other)
  Sender: FDA-Public Use
  Company Number: DE-TEVA-572976GER

PATIENT
  Age: 3 Decade
  Sex: Female
  Weight: 53 kg

DRUGS (3)
  1. VENLAFAXINE [Suspect]
     Active Substance: VENLAFAXINE HYDROCHLORIDE
     Indication: DEPRESSION
     Dosage: 37.5 MG/D STARTING WEEK 12, INCREASED TO 75MG/D STARTING FROM WEEK 16 ON
     Route: 048
     Dates: start: 20140815, end: 20150204
  2. GYNVITAL GRAVIDA [Concomitant]
     Active Substance: HERBALS
     Indication: PROPHYLAXIS OF NEURAL TUBE DEFECT
     Route: 048
     Dates: start: 20140615, end: 20150204
  3. CYTOTEC [Concomitant]
     Active Substance: MISOPROSTOL
     Indication: LABOUR INDUCTION
     Route: 065
     Dates: start: 20150203, end: 20150203

REACTIONS (2)
  - Foetal death [Recovered/Resolved]
  - Placental insufficiency [Recovered/Resolved]
